FAERS Safety Report 7282977-2 (Version None)
Quarter: 2011Q1

REPORT INFORMATION
  Report Type: 
  Country: None (occurrence: None)
  Receive Date: 20110209
  Receipt Date: 20110131
  Transmission Date: 20110831
  Serious: Yes (Hospitalization)
  Sender: FDA-Public Use
  Company Number: FR-NAPPMUNDI-GBR-2011-0007557

PATIENT
  Sex: Male
  Weight: 55 kg

DRUGS (5)
  1. DURAGESIC-100 [Concomitant]
     Dosage: 115 MCG, Q1H
  2. OXYCONTIN [Suspect]
     Dosage: 40 MG, BID
     Route: 048
     Dates: start: 20101230, end: 20101231
  3. OXYCONTIN [Suspect]
     Indication: PAIN
     Dosage: 80 MG, BID
     Route: 048
     Dates: start: 20101228, end: 20101229
  4. NARCAN [Concomitant]
  5. DURAGESIC-100 [Concomitant]
     Dosage: 125 MCG, Q1H
     Dates: end: 20101219

REACTIONS (2)
  - LOSS OF CONSCIOUSNESS [None]
  - RESPIRATORY DISORDER [None]
